FAERS Safety Report 6656062-4 (Version None)
Quarter: 2010Q1

REPORT INFORMATION
  Report Type: 
  Country: None (occurrence: None)
  Receive Date: 20100329
  Receipt Date: 20100329
  Transmission Date: 20100710
  Serious: Yes (Congenital Anomaly)
  Sender: FDA-Public Use
  Company Number: A0849571A

PATIENT

DRUGS (2)
  1. ZIAGEN [Suspect]
     Indication: ANTIVIRAL TREATMENT
  2. REYATAZ [Suspect]
     Indication: ANTIVIRAL TREATMENT

REACTIONS (7)
  - APLASIA [None]
  - CLEFT LIP [None]
  - CLEFT PALATE [None]
  - CONGENITAL JAW MALFORMATION [None]
  - DRUG EXPOSURE DURING PREGNANCY [None]
  - SYNDACTYLY [None]
  - TALIPES [None]
